FAERS Safety Report 7642574-3 (Version None)
Quarter: 2011Q3

REPORT INFORMATION
  Report Type: 
  Country: None (occurrence: None)
  Receive Date: 20110728
  Receipt Date: 20110715
  Transmission Date: 20111222
  Serious: Yes (Disabling, Other)
  Sender: FDA-Public Use
  Company Number: US-BAYER-201016195NA

PATIENT
  Age: 33 Year
  Sex: Female

DRUGS (1)
  1. MIRENA [Suspect]
     Indication: CONTRACEPTION
     Dosage: FREQUENCY: CONTINUOUS
     Route: 015
     Dates: start: 20081014, end: 20100305

REACTIONS (4)
  - MENOMETRORRHAGIA [None]
  - UTERINE PERFORATION [None]
  - VAGINAL HAEMORRHAGE [None]
  - MUSCLE SPASMS [None]
